FAERS Safety Report 8575069-3 (Version None)
Quarter: 2012Q3

REPORT INFORMATION
  Report Type: 
  Country: None (occurrence: None)
  Receive Date: 20120807
  Receipt Date: 20120625
  Transmission Date: 20120928
  Serious: Yes (Hospitalization)
  Sender: FDA-Public Use
  Company Number: US-BAYER-2012-078614

PATIENT
  Sex: Female

DRUGS (1)
  1. DROSPIRENONE AND ETHINYL ESTRADIOL [Suspect]
     Dosage: UNK

REACTIONS (6)
  - PAIN [None]
  - DEEP VEIN THROMBOSIS [None]
  - ANHEDONIA [None]
  - PULMONARY EMBOLISM [None]
  - ANXIETY [None]
  - INJURY [None]
